FAERS Safety Report 8353935-1 (Version None)
Quarter: 2012Q2

REPORT INFORMATION
  Report Type: 
  Country: None (occurrence: None)
  Receive Date: 20120509
  Receipt Date: 20120430
  Transmission Date: 20120825
  Serious: Yes (Other)
  Sender: FDA-Public Use
  Company Number: 2012SP022931

PATIENT
  Age: 55 Year
  Sex: Female

DRUGS (1)
  1. NASONEX [Suspect]
     Indication: MULTIPLE ALLERGIES
     Dates: start: 20000101

REACTIONS (4)
  - METAL POISONING [None]
  - APHONIA [None]
  - PAIN [None]
  - HEADACHE [None]
